FAERS Safety Report 5232716-1 (Version None)
Quarter: 2007Q1

REPORT INFORMATION
  Report Type: 
  Country: None (occurrence: None)
  Receive Date: 20070207
  Receipt Date: 20070126
  Transmission Date: 20070707
  Serious: Yes (Death, Other)
  Sender: FDA-Public Use
  Company Number: US-PURDUE-USA_2006_0025825

PATIENT
  Age: 18 Year
  Sex: Female
  Weight: 63 kg

DRUGS (3)
  1. BENZODIAZEPINE DERIVATIVES [Suspect]
     Indication: DRUG USE FOR UNKNOWN INDICATION
     Dosage: UNK, SEE TEXT
  2. MORPHINE SULFATE [Suspect]
     Indication: DRUG ABUSER
     Dosage: UNK, SEE TEXT
  3. XANAX [Suspect]
     Indication: DRUG ABUSER
     Dosage: UNK, SEE TEXT

REACTIONS (2)
  - MULTIPLE DRUG OVERDOSE [None]
  - SUBSTANCE ABUSE [None]
